FAERS Safety Report 15648542 (Version 2)
Quarter: 2019Q1

REPORT INFORMATION
  Report Type: Report from Study
  Country: JP (occurrence: JP)
  Receive Date: 20181122
  Receipt Date: 20190128
  Transmission Date: 20190417
  Serious: Yes (Hospitalization)
  Sender: FDA-Public Use
  Company Number: JP-JNJFOC-20181126230

PATIENT
  Age: 69 Year
  Sex: Male
  Weight: 60 kg

DRUGS (86)
  1. METFORMIN [Concomitant]
     Active Substance: METFORMIN HYDROCHLORIDE
     Indication: DEEP VEIN THROMBOSIS
     Route: 048
     Dates: start: 20170211, end: 20170211
  2. METFORMIN [Concomitant]
     Active Substance: METFORMIN HYDROCHLORIDE
     Indication: DEEP VEIN THROMBOSIS
     Route: 048
     Dates: start: 20170211, end: 20170211
  3. METFORMIN [Concomitant]
     Active Substance: METFORMIN HYDROCHLORIDE
     Indication: THROMBOLYSIS
     Route: 048
     Dates: start: 20170212, end: 20170214
  4. METFORMIN [Concomitant]
     Active Substance: METFORMIN HYDROCHLORIDE
     Indication: DEEP VEIN THROMBOSIS
     Route: 048
  5. METFORMIN [Concomitant]
     Active Substance: METFORMIN HYDROCHLORIDE
     Indication: DEEP VEIN THROMBOSIS
     Route: 048
  6. METFORMIN [Concomitant]
     Active Substance: METFORMIN HYDROCHLORIDE
     Indication: DEEP VEIN THROMBOSIS
     Route: 048
  7. METFORMIN [Concomitant]
     Active Substance: METFORMIN HYDROCHLORIDE
     Indication: THROMBOLYSIS
     Route: 048
  8. METFORMIN [Concomitant]
     Active Substance: METFORMIN HYDROCHLORIDE
     Indication: DEEP VEIN THROMBOSIS
     Route: 048
  9. METFORMIN [Concomitant]
     Active Substance: METFORMIN HYDROCHLORIDE
     Indication: THROMBOLYSIS
     Route: 048
  10. METFORMIN [Concomitant]
     Active Substance: METFORMIN HYDROCHLORIDE
     Indication: DEEP VEIN THROMBOSIS
     Route: 048
     Dates: start: 20170227, end: 20170228
  11. METFORMIN [Concomitant]
     Active Substance: METFORMIN HYDROCHLORIDE
     Indication: DEEP VEIN THROMBOSIS
     Route: 048
     Dates: start: 20170227, end: 20170228
  12. HEPARIN [Concomitant]
     Active Substance: HEPARIN SODIUM
     Indication: DEEP VEIN THROMBOSIS
     Route: 041
     Dates: start: 20170210, end: 20170210
  13. CILOSTAZOL. [Concomitant]
     Active Substance: CILOSTAZOL
     Route: 048
  14. METFORMIN [Concomitant]
     Active Substance: METFORMIN HYDROCHLORIDE
     Indication: DEEP VEIN THROMBOSIS
     Route: 048
     Dates: start: 20170211, end: 20170211
  15. METFORMIN [Concomitant]
     Active Substance: METFORMIN HYDROCHLORIDE
     Indication: DEEP VEIN THROMBOSIS
     Route: 048
     Dates: start: 20170211, end: 20170211
  16. METFORMIN [Concomitant]
     Active Substance: METFORMIN HYDROCHLORIDE
     Indication: THROMBOLYSIS
     Route: 048
     Dates: start: 20170212, end: 20170214
  17. METFORMIN [Concomitant]
     Active Substance: METFORMIN HYDROCHLORIDE
     Indication: THROMBOLYSIS
     Route: 048
     Dates: start: 20170210, end: 20170210
  18. METFORMIN [Concomitant]
     Active Substance: METFORMIN HYDROCHLORIDE
     Indication: DEEP VEIN THROMBOSIS
     Route: 048
     Dates: start: 20170211, end: 20170211
  19. METFORMIN [Concomitant]
     Active Substance: METFORMIN HYDROCHLORIDE
     Indication: THROMBOLYSIS
     Route: 048
     Dates: start: 20170211, end: 20170211
  20. METFORMIN [Concomitant]
     Active Substance: METFORMIN HYDROCHLORIDE
     Indication: DEEP VEIN THROMBOSIS
     Route: 048
     Dates: start: 20170212, end: 20170214
  21. METFORMIN [Concomitant]
     Active Substance: METFORMIN HYDROCHLORIDE
     Indication: DEEP VEIN THROMBOSIS
     Route: 048
     Dates: start: 20170212, end: 20170214
  22. METFORMIN [Concomitant]
     Active Substance: METFORMIN HYDROCHLORIDE
     Indication: DEEP VEIN THROMBOSIS
     Route: 048
  23. URONASE [Concomitant]
     Active Substance: UROKINASE
     Indication: THROMBOLYSIS
     Route: 041
     Dates: start: 20170212, end: 20170214
  24. GLIMEPIRIDE. [Concomitant]
     Active Substance: GLIMEPIRIDE
     Route: 048
  25. XARELTO [Suspect]
     Active Substance: RIVAROXABAN
     Indication: DEEP VEIN THROMBOSIS
     Route: 048
     Dates: start: 20170215, end: 20170307
  26. METFORMIN [Concomitant]
     Active Substance: METFORMIN HYDROCHLORIDE
     Indication: DEEP VEIN THROMBOSIS
     Route: 048
     Dates: start: 20170210, end: 20170210
  27. METFORMIN [Concomitant]
     Active Substance: METFORMIN HYDROCHLORIDE
     Indication: DEEP VEIN THROMBOSIS
     Route: 048
     Dates: start: 20170210, end: 20170210
  28. METFORMIN [Concomitant]
     Active Substance: METFORMIN HYDROCHLORIDE
     Indication: THROMBOLYSIS
     Route: 048
  29. METFORMIN [Concomitant]
     Active Substance: METFORMIN HYDROCHLORIDE
     Indication: DEEP VEIN THROMBOSIS
     Route: 048
  30. METFORMIN [Concomitant]
     Active Substance: METFORMIN HYDROCHLORIDE
     Indication: DEEP VEIN THROMBOSIS
     Route: 048
  31. METFORMIN [Concomitant]
     Active Substance: METFORMIN HYDROCHLORIDE
     Indication: THROMBOLYSIS
     Route: 048
  32. METFORMIN [Concomitant]
     Active Substance: METFORMIN HYDROCHLORIDE
     Indication: THROMBOLYSIS
     Route: 048
     Dates: start: 20170227, end: 20170228
  33. URONASE [Concomitant]
     Active Substance: UROKINASE
     Indication: THROMBOLYSIS
     Dosage: 60000 (UNITS UNKNOWN)
     Route: 041
     Dates: start: 20170210, end: 20170210
  34. TOUGHMAC E [Concomitant]
     Active Substance: AMYLASE\LIPASE\PROTEASE
     Route: 048
     Dates: start: 20170220, end: 20170306
  35. METFORMIN [Concomitant]
     Active Substance: METFORMIN HYDROCHLORIDE
     Indication: DEEP VEIN THROMBOSIS
     Route: 048
     Dates: start: 20170210, end: 20170210
  36. METFORMIN [Concomitant]
     Active Substance: METFORMIN HYDROCHLORIDE
     Indication: THROMBOLYSIS
     Route: 048
     Dates: start: 20170210, end: 20170210
  37. METFORMIN [Concomitant]
     Active Substance: METFORMIN HYDROCHLORIDE
     Indication: THROMBOLYSIS
     Route: 048
     Dates: start: 20170210, end: 20170210
  38. METFORMIN [Concomitant]
     Active Substance: METFORMIN HYDROCHLORIDE
     Indication: THROMBOLYSIS
     Route: 048
     Dates: start: 20170211, end: 20170211
  39. METFORMIN [Concomitant]
     Active Substance: METFORMIN HYDROCHLORIDE
     Indication: DEEP VEIN THROMBOSIS
     Route: 048
     Dates: start: 20170212, end: 20170214
  40. METFORMIN [Concomitant]
     Active Substance: METFORMIN HYDROCHLORIDE
     Indication: DEEP VEIN THROMBOSIS
     Route: 048
     Dates: start: 20170212, end: 20170214
  41. METFORMIN [Concomitant]
     Active Substance: METFORMIN HYDROCHLORIDE
     Indication: THROMBOLYSIS
     Route: 048
     Dates: start: 20170210, end: 20170210
  42. METFORMIN [Concomitant]
     Active Substance: METFORMIN HYDROCHLORIDE
     Indication: THROMBOLYSIS
     Route: 048
     Dates: start: 20170211, end: 20170211
  43. METFORMIN [Concomitant]
     Active Substance: METFORMIN HYDROCHLORIDE
     Indication: DEEP VEIN THROMBOSIS
     Route: 048
     Dates: start: 20170212, end: 20170214
  44. METFORMIN [Concomitant]
     Active Substance: METFORMIN HYDROCHLORIDE
     Indication: DEEP VEIN THROMBOSIS
     Route: 048
  45. METFORMIN [Concomitant]
     Active Substance: METFORMIN HYDROCHLORIDE
     Indication: DEEP VEIN THROMBOSIS
     Route: 048
     Dates: start: 20170220, end: 20170306
  46. METFORMIN [Concomitant]
     Active Substance: METFORMIN HYDROCHLORIDE
     Indication: THROMBOLYSIS
     Route: 048
  47. METFORMIN [Concomitant]
     Active Substance: METFORMIN HYDROCHLORIDE
     Route: 048
     Dates: start: 20170227, end: 20170228
  48. METFORMIN [Concomitant]
     Active Substance: METFORMIN HYDROCHLORIDE
     Indication: THROMBOLYSIS
     Route: 048
     Dates: start: 20170211, end: 20170211
  49. METFORMIN [Concomitant]
     Active Substance: METFORMIN HYDROCHLORIDE
     Indication: THROMBOLYSIS
     Route: 048
     Dates: start: 20170212, end: 20170214
  50. METFORMIN [Concomitant]
     Active Substance: METFORMIN HYDROCHLORIDE
     Indication: DEEP VEIN THROMBOSIS
     Route: 048
     Dates: start: 20170211, end: 20170211
  51. METFORMIN [Concomitant]
     Active Substance: METFORMIN HYDROCHLORIDE
     Indication: THROMBOLYSIS
     Route: 048
  52. METFORMIN [Concomitant]
     Active Substance: METFORMIN HYDROCHLORIDE
     Indication: THROMBOLYSIS
     Route: 048
     Dates: start: 20170220, end: 20170306
  53. METFORMIN [Concomitant]
     Active Substance: METFORMIN HYDROCHLORIDE
     Indication: DEEP VEIN THROMBOSIS
     Route: 048
  54. METFORMIN [Concomitant]
     Active Substance: METFORMIN HYDROCHLORIDE
     Indication: THROMBOLYSIS
     Route: 048
  55. METFORMIN [Concomitant]
     Active Substance: METFORMIN HYDROCHLORIDE
     Indication: THROMBOLYSIS
     Route: 048
  56. METFORMIN [Concomitant]
     Active Substance: METFORMIN HYDROCHLORIDE
     Indication: THROMBOLYSIS
     Route: 048
     Dates: start: 20170227, end: 20170228
  57. HEPARIN [Concomitant]
     Active Substance: HEPARIN SODIUM
     Indication: DEEP VEIN THROMBOSIS
     Route: 041
     Dates: start: 20170212, end: 20170214
  58. METFORMIN [Concomitant]
     Active Substance: METFORMIN HYDROCHLORIDE
     Indication: DEEP VEIN THROMBOSIS
     Route: 048
     Dates: start: 20170210, end: 20170210
  59. METFORMIN [Concomitant]
     Active Substance: METFORMIN HYDROCHLORIDE
     Indication: THROMBOLYSIS
     Route: 048
     Dates: start: 20170212, end: 20170214
  60. METFORMIN [Concomitant]
     Active Substance: METFORMIN HYDROCHLORIDE
     Indication: DEEP VEIN THROMBOSIS
     Route: 048
  61. METFORMIN [Concomitant]
     Active Substance: METFORMIN HYDROCHLORIDE
     Indication: THROMBOLYSIS
     Route: 048
  62. METFORMIN [Concomitant]
     Active Substance: METFORMIN HYDROCHLORIDE
     Indication: THROMBOLYSIS
     Route: 048
     Dates: start: 20170220, end: 20170306
  63. ATEDIO [Concomitant]
     Route: 048
  64. METFORMIN [Concomitant]
     Active Substance: METFORMIN HYDROCHLORIDE
     Indication: DEEP VEIN THROMBOSIS
     Route: 048
     Dates: start: 20170210, end: 20170210
  65. METFORMIN [Concomitant]
     Active Substance: METFORMIN HYDROCHLORIDE
     Indication: THROMBOLYSIS
     Route: 048
     Dates: start: 20170210, end: 20170210
  66. METFORMIN [Concomitant]
     Active Substance: METFORMIN HYDROCHLORIDE
     Indication: THROMBOLYSIS
     Route: 048
     Dates: start: 20170211, end: 20170211
  67. METFORMIN [Concomitant]
     Active Substance: METFORMIN HYDROCHLORIDE
     Indication: DEEP VEIN THROMBOSIS
     Route: 048
  68. METFORMIN [Concomitant]
     Active Substance: METFORMIN HYDROCHLORIDE
     Indication: THROMBOLYSIS
     Route: 048
  69. METFORMIN [Concomitant]
     Active Substance: METFORMIN HYDROCHLORIDE
     Indication: THROMBOLYSIS
     Route: 048
  70. METFORMIN [Concomitant]
     Active Substance: METFORMIN HYDROCHLORIDE
     Indication: DEEP VEIN THROMBOSIS
     Route: 048
     Dates: start: 20170220, end: 20170306
  71. METFORMIN [Concomitant]
     Active Substance: METFORMIN HYDROCHLORIDE
     Indication: DEEP VEIN THROMBOSIS
     Route: 048
     Dates: start: 20170227, end: 20170228
  72. HEPARIN [Concomitant]
     Active Substance: HEPARIN SODIUM
     Indication: DEEP VEIN THROMBOSIS
     Route: 041
     Dates: start: 20170211, end: 20170211
  73. URONASE [Concomitant]
     Active Substance: UROKINASE
     Indication: THROMBOLYSIS
     Dosage: 18000 (UNITS UNKNOWN)
     Route: 041
     Dates: start: 20170211, end: 20170211
  74. CARVEDILOL. [Concomitant]
     Active Substance: CARVEDILOL
     Route: 048
  75. XARELTO [Suspect]
     Active Substance: RIVAROXABAN
     Indication: DEEP VEIN THROMBOSIS
     Route: 048
     Dates: start: 20170308
  76. METFORMIN [Concomitant]
     Active Substance: METFORMIN HYDROCHLORIDE
     Indication: THROMBOLYSIS
     Route: 048
     Dates: start: 20170210, end: 20170210
  77. METFORMIN [Concomitant]
     Active Substance: METFORMIN HYDROCHLORIDE
     Indication: THROMBOLYSIS
     Route: 048
     Dates: start: 20170211, end: 20170211
  78. METFORMIN [Concomitant]
     Active Substance: METFORMIN HYDROCHLORIDE
     Indication: DEEP VEIN THROMBOSIS
     Route: 048
     Dates: start: 20170212, end: 20170214
  79. METFORMIN [Concomitant]
     Active Substance: METFORMIN HYDROCHLORIDE
     Indication: THROMBOLYSIS
     Route: 048
     Dates: start: 20170212, end: 20170214
  80. METFORMIN [Concomitant]
     Active Substance: METFORMIN HYDROCHLORIDE
     Indication: DEEP VEIN THROMBOSIS
     Route: 048
     Dates: start: 20170210, end: 20170210
  81. METFORMIN [Concomitant]
     Active Substance: METFORMIN HYDROCHLORIDE
     Indication: THROMBOLYSIS
     Route: 048
     Dates: start: 20170212, end: 20170214
  82. METFORMIN [Concomitant]
     Active Substance: METFORMIN HYDROCHLORIDE
     Indication: THROMBOLYSIS
     Route: 048
  83. METFORMIN [Concomitant]
     Active Substance: METFORMIN HYDROCHLORIDE
     Indication: DEEP VEIN THROMBOSIS
     Route: 048
     Dates: start: 20170220, end: 20170306
  84. METFORMIN [Concomitant]
     Active Substance: METFORMIN HYDROCHLORIDE
     Indication: THROMBOLYSIS
     Route: 048
     Dates: start: 20170220, end: 20170306
  85. METFORMIN [Concomitant]
     Active Substance: METFORMIN HYDROCHLORIDE
     Indication: DEEP VEIN THROMBOSIS
     Route: 048
  86. METFORMIN [Concomitant]
     Active Substance: METFORMIN HYDROCHLORIDE
     Indication: THROMBOLYSIS
     Route: 048
     Dates: start: 20170227, end: 20170228

REACTIONS (1)
  - Peripheral arterial occlusive disease [Recovered/Resolved]

NARRATIVE: CASE EVENT DATE: 201802
